FAERS Safety Report 7624766-2 (Version None)
Quarter: 2011Q3

REPORT INFORMATION
  Report Type: 
  Country: None (occurrence: None)
  Receive Date: 20110720
  Receipt Date: 20091203
  Transmission Date: 20111222
  Serious: Yes (Death)
  Sender: FDA-Public Use
  Company Number: US-BAYER-200934677NA

PATIENT
  Age: 57 Year
  Sex: Female
  Weight: 65.1 kg

DRUGS (12)
  1. OMNISCAN [Suspect]
     Indication: ANGIOGRAM
  2. GADOLINIUM IN UNSPECIFIED DRUG [Suspect]
     Dosage: 20 ML, ONCE
     Dates: start: 20060119, end: 20060119
  3. MAGNEVIST [Suspect]
     Indication: NUCLEAR MAGNETIC RESONANCE IMAGING
  4. PROHANCE [Suspect]
     Indication: NUCLEAR MAGNETIC RESONANCE IMAGING
  5. PROHANCE [Suspect]
     Indication: ANGIOGRAM
  6. MAGNEVIST [Suspect]
     Indication: ANGIOGRAM
  7. OMNISCAN [Suspect]
     Indication: NUCLEAR MAGNETIC RESONANCE IMAGING
  8. OPTIMARK [Suspect]
     Indication: ANGIOGRAM
  9. GADOLINIUM IN UNSPECIFIED DRUG [Suspect]
     Indication: NUCLEAR MAGNETIC RESONANCE IMAGING
     Dosage: UNK UNK, ONCE
     Dates: start: 20000311, end: 20000311
  10. MULTIHANCE [Suspect]
     Indication: ANGIOGRAM
  11. OPTIMARK [Suspect]
     Indication: NUCLEAR MAGNETIC RESONANCE IMAGING
  12. MULTIHANCE [Suspect]
     Indication: NUCLEAR MAGNETIC RESONANCE IMAGING

REACTIONS (11)
  - SKIN FIBROSIS [None]
  - SCAR [None]
  - DEFORMITY [None]
  - GENERAL PHYSICAL HEALTH DETERIORATION [None]
  - DEPRESSION [None]
  - PAIN [None]
  - DISORIENTATION [None]
  - ARTHROFIBROSIS [None]
  - JOINT CONTRACTURE [None]
  - EXTREMITY CONTRACTURE [None]
  - NEPHROGENIC SYSTEMIC FIBROSIS [None]
